FAERS Safety Report 17888355 (Version 6)
Quarter: 2020Q3

REPORT INFORMATION
  Report Type: Spontaneous
  Country: GB (occurrence: GB)
  Receive Date: 20200612
  Receipt Date: 20200930
  Transmission Date: 20201103
  Serious: Yes (Hospitalization, Other)
  Sender: FDA-Public Use
  Company Number: GB-MYLANLABS-2020M1055807

PATIENT
  Age: 69 Year
  Sex: Male

DRUGS (15)
  1. FUROSEMIDE. [Interacting]
     Active Substance: FUROSEMIDE
     Indication: LYMPHOEDEMA
     Dosage: 40 MILLIGRAM, QD
     Route: 048
  2. OLANZAPINE. [Concomitant]
     Active Substance: OLANZAPINE
     Indication: BIPOLAR DISORDER
     Dosage: 5 MILLIGRAM, QD (THREE DAYS LATER, OLANZAPINE WAS INCREASED TO 5MG TWICE A DAY)
  3. OLANZAPINE. [Concomitant]
     Active Substance: OLANZAPINE
     Dosage: 15 MILLIGRAM, QD (AT NIGHT)
  4. VALPROIC ACID. [Suspect]
     Active Substance: VALPROIC ACID
     Indication: AGITATION
     Dosage: 250 MILLIGRAM, BID
  5. VALPROIC ACID. [Suspect]
     Active Substance: VALPROIC ACID
     Dosage: 250 MILLIGRAM, TID (THREE TIMES A DAY)
  6. LITHIUM. [Interacting]
     Active Substance: LITHIUM
     Indication: BIPOLAR DISORDER
     Dosage: UNK
  7. BISOPROLOL [Concomitant]
     Active Substance: BISOPROLOL
     Indication: MYOCARDIAL INFARCTION
     Dosage: UNK
  8. OLANZAPINE. [Concomitant]
     Active Substance: OLANZAPINE
     Dosage: 10 MILLIGRAM, QD (AT NIGHT)
  9. FLUCLOXACILLIN [Concomitant]
     Active Substance: FLUCLOXACILLIN
     Indication: CELLULITIS
     Dosage: 1 GRAM, QID
     Route: 048
  10. LORAZEPAM. [Suspect]
     Active Substance: LORAZEPAM
     Indication: AGITATION
     Dosage: 0.5 MILLIGRAM, PRN (A MAXIMUM DOSAGE OF 2MG PER DAY)
  11. WARFARIN [Suspect]
     Active Substance: WARFARIN
     Indication: ATRIAL FIBRILLATION
     Dosage: UNK
  12. VALPROATE SODIUM W/VALPROIC ACID [Suspect]
     Active Substance: VALPROIC ACID
     Indication: BIPOLAR DISORDER
     Dosage: 1 DOSAGE FORM, BID
  13. VALPROATE SODIUM W/VALPROIC ACID [Suspect]
     Active Substance: VALPROIC ACID
     Dosage: 1 DOSAGE FORM, TID
  14. OLANZAPINE. [Concomitant]
     Active Substance: OLANZAPINE
     Dosage: 5 MILLIGRAM, BID
  15. ZOPICLONE [Concomitant]
     Active Substance: ZOPICLONE
     Dosage: 7.5 MILLIGRAM, QD (AT NIGHT)

REACTIONS (24)
  - Rebound effect [Recovering/Resolving]
  - Thinking abnormal [Recovering/Resolving]
  - Ataxia [Recovering/Resolving]
  - Restlessness [Recovering/Resolving]
  - Irritability [Recovering/Resolving]
  - Drug abuse [Unknown]
  - Toxicity to various agents [Recovering/Resolving]
  - Pressure of speech [Recovering/Resolving]
  - Affect lability [Recovering/Resolving]
  - Language disorder [Recovering/Resolving]
  - Sleep disorder [Recovering/Resolving]
  - Overdose [Unknown]
  - Mania [Recovering/Resolving]
  - Flight of ideas [Recovering/Resolving]
  - Head injury [Unknown]
  - International normalised ratio increased [Recovered/Resolved]
  - Hypotension [Unknown]
  - Bipolar disorder [Recovering/Resolving]
  - Delirium [Unknown]
  - Confusional state [Recovering/Resolving]
  - Drug interaction [Recovering/Resolving]
  - Fall [Unknown]
  - Lymphoedema [Unknown]
  - Agitation [Recovering/Resolving]
